FAERS Safety Report 7213951-X (Version None)
Quarter: 2011Q1

REPORT INFORMATION
  Report Type: 
  Country: None (occurrence: None)
  Receive Date: 20110106
  Receipt Date: 20101227
  Transmission Date: 20110831
  Serious: Yes (Other)
  Sender: FDA-Public Use
  Company Number: JP-MERCK-1012USA03894

PATIENT
  Age: 36 Year
  Sex: Female

DRUGS (1)
  1. PEPCID RPD [Suspect]
     Route: 048
     Dates: start: 20090901, end: 20091001

REACTIONS (2)
  - LIVER DISORDER [None]
  - DRUG ERUPTION [None]
